FAERS Safety Report 5049239-5 (Version None)
Quarter: 2006Q2

REPORT INFORMATION
  Report Type: 
  Country: None (occurrence: None)
  Receive Date: 20060601
  Receipt Date: 20060302
  Transmission Date: 20061013
  Serious: No
  Sender: FDA-Public Use
  Company Number: US200603000792

PATIENT
  Age: 50 Year
  Sex: Female

DRUGS (5)
  1. CYMBALTA [Suspect]
     Indication: DEPRESSION
     Dosage: SEE IMAGE
     Dates: end: 20060226
  2. CYMBALTA [Suspect]
     Indication: DEPRESSION
     Dosage: SEE IMAGE
     Dates: start: 20060221
  3. ADDERALL (AMFETAMINE ASPARTATE, AMFETAMINE SULFATE, DEXAMFETAMINE SACC [Concomitant]
  4. THYROID TAB [Concomitant]
  5. VITAMINS [Concomitant]

REACTIONS (10)
  - BALANCE DISORDER [None]
  - EAR DISCOMFORT [None]
  - EAR HAEMORRHAGE [None]
  - EAR PAIN [None]
  - FATIGUE [None]
  - FOOD CRAVING [None]
  - HYPOGLYCAEMIA [None]
  - MIDDLE INSOMNIA [None]
  - NAUSEA [None]
  - TREMOR [None]
